FAERS Safety Report 11037477 (Version 2)
Quarter: 2015Q2

REPORT INFORMATION
  Report Type: Spontaneous
  Country: AU (occurrence: AU)
  Receive Date: 20150416
  Receipt Date: 20150418
  Transmission Date: 20150821
  Serious: Yes (Death, Hospitalization)
  Sender: FDA-Public Use
  Company Number: AU-SUN PHARMACEUTICAL INDUSTRIES LTD-2015RR-95695

PATIENT
  Age: 9 Year
  Sex: Female

DRUGS (19)
  1. BASILIXIMAB [Suspect]
     Active Substance: BASILIXIMAB
     Indication: IMMUNOSUPPRESSANT DRUG THERAPY
     Dosage: 10MG INDUCTION ON DAYS 0 AND 4
     Route: 065
  2. HYDROCORTISONE. [Suspect]
     Active Substance: HYDROCORTISONE
     Indication: IMMUNOSUPPRESSANT DRUG THERAPY
     Dosage: 20 MG, DAILY
     Route: 065
  3. TACROLIMUS. [Suspect]
     Active Substance: TACROLIMUS
     Indication: IMMUNOSUPPRESSANT DRUG THERAPY
     Dosage: 0.1 MG, DAILY
     Route: 042
  4. PREDNISOLONE. [Suspect]
     Active Substance: PREDNISOLONE
     Indication: IMMUNOSUPPRESSANT DRUG THERAPY
     Dosage: 8 MG
     Route: 065
  5. FOSCARNET [Concomitant]
     Active Substance: FOSCARNET
     Indication: CYTOMEGALOVIRUS INFECTION
     Dosage: UNK
     Route: 065
  6. AZATHIOPRINE. [Suspect]
     Active Substance: AZATHIOPRINE
     Indication: IMMUNOSUPPRESSANT DRUG THERAPY
     Dosage: 50 MG, DAILY
     Route: 065
  7. GANCICLOVIR. [Concomitant]
     Active Substance: GANCICLOVIR
     Indication: ANTIVIRAL TREATMENT
     Dosage: UNK
     Route: 065
  8. NYSTATIN. [Concomitant]
     Active Substance: NYSTATIN
     Indication: PRODUCT USED FOR UNKNOWN INDICATION
     Route: 065
  9. TACROLIMUS. [Suspect]
     Active Substance: TACROLIMUS
     Indication: IMMUNOSUPPRESSANT DRUG THERAPY
     Dosage: BLOOD LEVEL: APPROX. 3MCG/L
     Route: 065
  10. MYFORTIC [Suspect]
     Active Substance: MYCOPHENOLATE SODIUM
     Indication: IMMUNOSUPPRESSANT DRUG THERAPY
     Dosage: 360 MG, TID
     Route: 065
  11. MYCOPHENOLATE MOFETIL. [Suspect]
     Active Substance: MYCOPHENOLATE MOFETIL
     Indication: IMMUNOSUPPRESSANT DRUG THERAPY
     Dosage: 400 MG, BID
     Route: 065
  12. MYCOPHENOLATE MOFETIL. [Suspect]
     Active Substance: MYCOPHENOLATE MOFETIL
     Indication: IMMUNOSUPPRESSANT DRUG THERAPY
     Dosage: 300 MG, BID
     Route: 065
  13. TACROLIMUS. [Suspect]
     Active Substance: TACROLIMUS
     Indication: IMMUNOSUPPRESSANT DRUG THERAPY
     Dosage: TARGET CONCENTRATION OF APPROX. 5 MCG/L
     Route: 065
  14. VALGANCICLOVIR [Concomitant]
     Active Substance: VALGANCICLOVIR
     Indication: CYTOMEGALOVIRUS INFECTION
     Dosage: UNK
     Route: 065
  15. RANITIDINE [Concomitant]
     Active Substance: RANITIDINE\RANITIDINE HYDROCHLORIDE
     Indication: PRODUCT USED FOR UNKNOWN INDICATION
     Route: 065
  16. TACROLIMUS. [Suspect]
     Active Substance: TACROLIMUS
     Indication: IMMUNOSUPPRESSANT DRUG THERAPY
     Dosage: 3.5 MG, BID
     Route: 065
  17. METHYLPREDNISOLONE. [Suspect]
     Active Substance: METHYLPREDNISOLONE
     Indication: IMMUNOSUPPRESSANT DRUG THERAPY
     Dosage: TWO BOLUSES OF 300MG
     Route: 065
  18. PREDNISOLONE. [Suspect]
     Active Substance: PREDNISOLONE
     Indication: IMMUNOSUPPRESSANT DRUG THERAPY
     Dosage: 25 MG, DAILY
     Route: 048
  19. COTRIMOXAZOLE [Concomitant]
     Active Substance: SULFAMETHOXAZOLE\TRIMETHOPRIM
     Indication: PRODUCT USED FOR UNKNOWN INDICATION
     Route: 065

REACTIONS (4)
  - JC virus infection [Fatal]
  - Gastrointestinal viral infection [Unknown]
  - Progressive multifocal leukoencephalopathy [Fatal]
  - Small intestinal obstruction [Unknown]
